FAERS Safety Report 12652116 (Version 1)
Quarter: 2016Q3

REPORT INFORMATION
  Report Type: Other
  Country: HU (occurrence: HU)
  Receive Date: 20160815
  Receipt Date: 20160815
  Transmission Date: 20161109
  Serious: Yes (Hospitalization)
  Sender: FDA-Public Use
  Company Number: HU-ENDO PHARMACEUTICALS INC-2016-004917

PATIENT
  Age: 33 Year
  Sex: Female

DRUGS (2)
  1. DISULFIRAM TABLETS USP [Suspect]
     Active Substance: DISULFIRAM
     Indication: PRODUCT USED FOR UNKNOWN INDICATION
     Dosage: 20 GRAMS
     Route: 065
  2. BENZODIAZEPINES [Suspect]
     Active Substance: BENZODIAZEPINE
     Indication: PRODUCT USED FOR UNKNOWN INDICATION
     Route: 065

REACTIONS (9)
  - Intentional overdose [None]
  - Toxicity to various agents [Recovered/Resolved]
  - Catatonia [Recovered/Resolved]
  - Rhabdomyolysis [Recovered/Resolved]
  - Generalised tonic-clonic seizure [Recovered/Resolved]
  - Suicide attempt [Recovered/Resolved]
  - Overdose [Recovered/Resolved]
  - Coma [Recovered/Resolved]
  - Brain injury [None]
